FAERS Safety Report 6232937-5 (Version None)
Quarter: 2009Q2

REPORT INFORMATION
  Report Type: 
  Country: None (occurrence: None)
  Receive Date: 20090617
  Receipt Date: 20090609
  Transmission Date: 20091009
  Serious: Yes (Hospitalization)
  Sender: FDA-Public Use
  Company Number: PH-ASTRAZENECA-2009SE02413

PATIENT
  Age: 50 Year
  Sex: Female

DRUGS (1)
  1. SEROQUEL XR [Suspect]
     Indication: SCHIZOPHRENIA
     Route: 048
     Dates: start: 20070101, end: 20090607

REACTIONS (4)
  - OVERDOSE [None]
  - SACCADIC EYE MOVEMENT [None]
  - SOMNOLENCE [None]
  - SUICIDE ATTEMPT [None]
